FAERS Safety Report 25710187 (Version 1)
Quarter: 2025Q3

REPORT INFORMATION
  Report Type: Spontaneous
  Country: EU (occurrence: EU)
  Receive Date: 20250821
  Receipt Date: 20250821
  Transmission Date: 20251020
  Serious: Yes (Congenital Anomaly)
  Sender: RANBAXY
  Company Number: EU-SUN PHARMACEUTICAL INDUSTRIES LTD-2025RR-523662

PATIENT
  Sex: Female
  Weight: 3.21 kg

DRUGS (1)
  1. RIVAROXABAN [Suspect]
     Active Substance: RIVAROXABAN
     Indication: Deep vein thrombosis
     Route: 064
     Dates: start: 20210924, end: 20220128

REACTIONS (4)
  - Pyelocaliectasis [Not Recovered/Not Resolved]
  - Developmental hip dysplasia [Recovering/Resolving]
  - Maternal exposure during pregnancy [Recovered/Resolved]
  - Maternal exposure during pregnancy [Recovered/Resolved]

NARRATIVE: CASE EVENT DATE: 20210924
